FAERS Safety Report 4879074-X (Version None)
Quarter: 2005Q4

REPORT INFORMATION
  Report Type: 
  Country: None (occurrence: None)
  Receive Date: 20051209
  Receipt Date: 20050907
  Transmission Date: 20060501
  Serious: Yes (Other)
  Sender: FDA-Public Use
  Company Number: USA-2003-0004089

PATIENT
  Age: 33 Year
  Sex: Female
  Weight: 87.5 kg

DRUGS (10)
  1. OXYCONTIN [Suspect]
     Indication: PAIN
     Dosage: 20 MG, BID, ORAL
     Route: 048
     Dates: start: 19990909
  2. OXYCODONE HCL [Suspect]
     Indication: PAIN
     Dosage: 1 TABLET, Q4H PRN
     Dates: start: 19991214, end: 20001113
  3. VALIUM HYDROCHLORIDE AZITHROMYCIN [Concomitant]
  4. ZOLOFT [Concomitant]
  5. VIOXX [Concomitant]
  6. FASTIN [Concomitant]
  7. LORCET-HD [Concomitant]
  8. MERIDIA [Concomitant]
  9. ZONEGRAN [Concomitant]
  10. LASIX [Concomitant]

REACTIONS (25)
  - ABDOMINAL PAIN LOWER [None]
  - ANXIETY [None]
  - ARTHRALGIA [None]
  - BLOOD PRESSURE INCREASED [None]
  - CONDITION AGGRAVATED [None]
  - DEPRESSION [None]
  - DIARRHOEA [None]
  - DRUG DEPENDENCE [None]
  - DRUG WITHDRAWAL SYNDROME [None]
  - HEADACHE [None]
  - HYPERHIDROSIS [None]
  - INSOMNIA [None]
  - IRRITABILITY [None]
  - LIMB INJURY [None]
  - MUSCLE SPASMS [None]
  - NAUSEA [None]
  - NERVOUSNESS [None]
  - OEDEMA [None]
  - PAIN [None]
  - PAIN IN EXTREMITY [None]
  - SWELLING [None]
  - TREMOR [None]
  - VAGINAL DISCHARGE [None]
  - VAGINAL HAEMORRHAGE [None]
  - VOMITING [None]
